FAERS Safety Report 11791593 (Version 1)
Quarter: 2015Q4

REPORT INFORMATION
  Report Type: Spontaneous
  Country: US (occurrence: US)
  Receive Date: 20151201
  Receipt Date: 20151201
  Transmission Date: 20160305
  Serious: No
  Sender: FDA-Public Use
  Company Number: US-BAYER-2015-470271

PATIENT
  Age: 59 Year
  Sex: Female

DRUGS (4)
  1. BETASERON [Suspect]
     Active Substance: INTERFERON BETA-1B
  2. PROVIGIL [Suspect]
     Active Substance: MODAFINIL
  3. AUBAGIO [Suspect]
     Active Substance: TERIFLUNOMIDE
  4. COPAXONE [Suspect]
     Active Substance: GLATIRAMER ACETATE

REACTIONS (2)
  - Sleep apnoea syndrome [None]
  - Fatigue [None]
